FAERS Safety Report 21023229 (Version 2)
Quarter: 2022Q3

REPORT INFORMATION
  Report Type: Other
  Country: DE (occurrence: None)
  Receive Date: 20220629
  Receipt Date: 20220701
  Transmission Date: 20221027
  Serious: No
  Sender: FDA-Public Use
  Company Number: DE-ROCHE-3127437

PATIENT
  Age: 31 Year
  Sex: Female
  Weight: 68 kg

DRUGS (4)
  1. OCRELIZUMAB [Suspect]
     Active Substance: OCRELIZUMAB
     Indication: Relapsing multiple sclerosis
     Route: 042
     Dates: start: 20181029, end: 20181112
  2. OCRELIZUMAB [Suspect]
     Active Substance: OCRELIZUMAB
     Route: 042
     Dates: start: 20190523
  3. DOXYDERMA [Concomitant]
     Indication: Acne
     Route: 048
     Dates: start: 20201001
  4. CIMETIDIN [Concomitant]
     Indication: Premedication
     Route: 042
     Dates: start: 20200525

REACTIONS (1)
  - COVID-19 [Recovered/Resolved]

NARRATIVE: CASE EVENT DATE: 20220301
